FAERS Safety Report 4485069-0 (Version None)
Quarter: 2004Q4

REPORT INFORMATION
  Report Type: 
  Country: None (occurrence: None)
  Receive Date: 20040921
  Receipt Date: 20031119
  Transmission Date: 20050328
  Serious: Yes (Death, Hospitalization)
  Sender: FDA-Public Use
  Company Number: 163-20785-03020108(1)

PATIENT
  Age: 47 Year
  Sex: Male

DRUGS (6)
  1. THALOMID [Suspect]
     Indication: PANCREATIC CARCINOMA
     Dosage: 300 MG, Q.H.S.,ORAL
     Route: 048
     Dates: start: 20021224, end: 20021227
  2. CELEBREX [Suspect]
     Indication: PANCREATIC CARCINOMA
     Dosage: 400 MG, TWICE DAILY
     Dates: start: 20021224, end: 20021227
  3. MOTRIN [Concomitant]
  4. PANCREASE (PANCRELIPASE) [Concomitant]
  5. PHENERGAN [Concomitant]
  6. PROTONIX [Concomitant]

REACTIONS (9)
  - BLOOD ALKALINE PHOSPHATASE INCREASED [None]
  - DEATH [None]
  - DIARRHOEA [None]
  - DISEASE PROGRESSION [None]
  - NAUSEA [None]
  - PYREXIA [None]
  - STENT OCCLUSION [None]
  - THROMBOSIS [None]
  - VOMITING [None]
